FAERS Safety Report 8186284-5 (Version None)
Quarter: 2012Q1

REPORT INFORMATION
  Report Type: 
  Country: None (occurrence: None)
  Receive Date: 20120306
  Receipt Date: 20120227
  Transmission Date: 20120608
  Serious: Yes (Hospitalization)
  Sender: FDA-Public Use
  Company Number: US-BAYER-2011-114318

PATIENT
  Age: 23 Year
  Sex: Female
  Weight: 72.562 kg

DRUGS (14)
  1. YAZ [Suspect]
     Indication: PREMENSTRUAL SYNDROME
  2. YASMIN [Suspect]
     Indication: ACNE
     Dosage: UNK
     Dates: start: 20020101
  3. YASMIN [Suspect]
     Indication: PREMENSTRUAL SYNDROME
  4. AUGMENTIN '125' [Concomitant]
     Dosage: 875 MG, BID
     Route: 048
     Dates: start: 20020605
  5. PREDNISONE TAB [Concomitant]
     Dosage: UNK
     Route: 048
     Dates: start: 20020418, end: 20020516
  6. AMOXICILLIN [Concomitant]
     Dosage: 500 MG, TID
     Route: 048
     Dates: start: 20020529, end: 20020605
  7. FLEXERIL [Concomitant]
     Dosage: 10 MG, TID
     Route: 048
  8. YAZ [Suspect]
     Indication: ACNE
     Dosage: UNK
     Dates: start: 20020101
  9. NAPROSYN [Concomitant]
     Dosage: UNK UNK, BID
     Route: 048
     Dates: start: 20020609
  10. VICODIN [Concomitant]
     Dosage: UNK UNK, PRN
     Route: 048
     Dates: start: 20020609
  11. PREVACID [Concomitant]
  12. ADVAIR DISKUS 100/50 [Concomitant]
  13. ALBUTEROL [Concomitant]
  14. ZITHROMAX [Concomitant]
     Dosage: UNK
     Route: 048
     Dates: start: 20020605

REACTIONS (3)
  - INJURY [None]
  - PAIN [None]
  - DEEP VEIN THROMBOSIS [None]
